FAERS Safety Report 25732333 (Version 1)
Quarter: 2025Q3

REPORT INFORMATION
  Report Type: Spontaneous
  Country: US (occurrence: US)
  Receive Date: 20250827
  Receipt Date: 20250827
  Transmission Date: 20251021
  Serious: Yes (Hospitalization)
  Sender: JOHNSON AND JOHNSON
  Company Number: US-JNJFOC-20250826244

PATIENT
  Age: 65 Year
  Sex: Female

DRUGS (4)
  1. OPSUMIT [Suspect]
     Active Substance: MACITENTAN
     Indication: Product used for unknown indication
     Route: 048
     Dates: start: 20250804, end: 202508
  2. REMODULIN [Suspect]
     Active Substance: TREPROSTINIL
     Indication: Pulmonary arterial hypertension
     Route: 042
     Dates: start: 20250801
  3. REMODULIN [Suspect]
     Active Substance: TREPROSTINIL
     Route: 042
  4. FUROSEMIDE [Concomitant]
     Active Substance: FUROSEMIDE
     Indication: Product used for unknown indication

REACTIONS (9)
  - Pulmonary arterial hypertension [Unknown]
  - Headache [Recovered/Resolved]
  - Dyspnoea exertional [Not Recovered/Not Resolved]
  - Dyspnoea [Not Recovered/Not Resolved]
  - Fatigue [Unknown]
  - Dizziness [Unknown]
  - Oedema peripheral [Not Recovered/Not Resolved]
  - Pain in extremity [Not Recovered/Not Resolved]
  - Sleep apnoea syndrome [Not Recovered/Not Resolved]

NARRATIVE: CASE EVENT DATE: 20250801
